FAERS Safety Report 7475397-9 (Version None)
Quarter: 2011Q2

REPORT INFORMATION
  Report Type: 
  Country: None (occurrence: None)
  Receive Date: 20110510
  Receipt Date: 20110510
  Transmission Date: 20111010
  Serious: Yes (Disabling)
  Sender: FDA-Public Use
  Company Number: None

PATIENT
  Sex: Female
  Weight: 44.4525 kg

DRUGS (2)
  1. HALFLYTELY [Suspect]
     Indication: COLONOSCOPY
     Dates: start: 20080601
  2. GOLYTELY [Suspect]
     Dates: start: 20080801

REACTIONS (25)
  - SALIVARY HYPERSECRETION [None]
  - FUNGAL INFECTION [None]
  - DRY SKIN [None]
  - PRURITUS [None]
  - PAIN IN EXTREMITY [None]
  - GASTROINTESTINAL SOUNDS ABNORMAL [None]
  - FATIGUE [None]
  - MUSCULAR WEAKNESS [None]
  - GAIT DISTURBANCE [None]
  - PARAESTHESIA [None]
  - VERTIGO [None]
  - FURUNCLE [None]
  - LETHARGY [None]
  - NERVOUSNESS [None]
  - MUSCLE CONTRACTIONS INVOLUNTARY [None]
  - SKIN DISORDER [None]
  - SENSATION OF HEAVINESS [None]
  - WEIGHT DECREASED [None]
  - SOMNOLENCE [None]
  - URINE ANALYSIS ABNORMAL [None]
  - FEELING ABNORMAL [None]
  - MUSCLE DISORDER [None]
  - DIZZINESS [None]
  - TREMOR [None]
  - EAR DISCOMFORT [None]
